FAERS Safety Report 5901223-2 (Version None)
Quarter: 2008Q3

REPORT INFORMATION
  Report Type: 
  Country: None (occurrence: None)
  Receive Date: 20080929
  Receipt Date: 20080613
  Transmission Date: 20090109
  Serious: No
  Sender: FDA-Public Use
  Company Number: US-BRISTOL-MYERS SQUIBB COMPANY-14226948

PATIENT
  Age: 53 Year
  Sex: Female

DRUGS (7)
  1. ORENCIA [Suspect]
     Indication: RHEUMATOID ARTHRITIS
  2. SYNTHROID [Concomitant]
  3. COZAAR [Concomitant]
  4. ZOCOR [Concomitant]
  5. PLAQUENIL [Concomitant]
  6. METHOTREXATE [Concomitant]
  7. PRILOSEC [Concomitant]

REACTIONS (2)
  - NAIL DYSTROPHY [None]
  - ONYCHALGIA [None]
